FAERS Safety Report 5256154-0 (Version None)
Quarter: 2007Q1

REPORT INFORMATION
  Report Type: 
  Country: None (occurrence: None)
  Receive Date: 20061219
  Receipt Date: 20060922
  Transmission Date: 20070707
  Serious: No
  Sender: FDA-Public Use
  Company Number: 2006US002220

PATIENT
  Age: 96 Year
  Sex: Female

DRUGS (1)
  1. VESICARE [Suspect]
     Dosage: 5 MG

REACTIONS (2)
  - CONSTIPATION [None]
  - VISION BLURRED [None]
